FAERS Safety Report 22650546 (Version 1)
Quarter: 2023Q2

REPORT INFORMATION
  Report Type: Spontaneous
  Country: US (occurrence: None)
  Receive Date: 20230627
  Receipt Date: 20230627
  Transmission Date: 20230722
  Serious: No
  Sender: FDA-Public Use
  Company Number: None

PATIENT
  Age: 66 Year
  Sex: Female
  Weight: 80.1 kg

DRUGS (2)
  1. NEULASTA [Suspect]
     Active Substance: PEGFILGRASTIM
     Indication: Chemotherapy toxicity attenuation
     Dosage: FREQUENCY : AS NEEDED;?
     Dates: start: 20230622, end: 20230622
  2. NEULASTA [Suspect]
     Active Substance: PEGFILGRASTIM
     Indication: White blood cell count

REACTIONS (4)
  - Bone pain [None]
  - Migraine [None]
  - Pain [None]
  - Inadequate analgesia [None]

NARRATIVE: CASE EVENT DATE: 20230622
